FAERS Safety Report 25860228 (Version 1)
Quarter: 2025Q3

REPORT INFORMATION
  Report Type: Report from Study
  Country: US (occurrence: US)
  Receive Date: 20250929
  Receipt Date: 20250929
  Transmission Date: 20251021
  Serious: No
  Sender: MALLINCKRODT
  Company Number: US-MALLINCKRODT-MNK202505665

PATIENT
  Age: 82 Year
  Sex: Female
  Weight: 45 kg

DRUGS (11)
  1. CORTICOTROPIN [Suspect]
     Active Substance: CORTICOTROPIN
     Indication: Keratitis
     Dosage: 80 UNITS
     Route: 058
     Dates: start: 20250814
  2. FLUOROMETHOLONE [Concomitant]
     Active Substance: FLUOROMETHOLONE
  3. FOLIC ACID [Concomitant]
     Active Substance: FOLIC ACID
     Route: 048
  4. VITAMIN B12 [Concomitant]
     Active Substance: CYANOCOBALAMIN
     Route: 048
  5. VITAMIN D3 [Concomitant]
     Active Substance: CHOLECALCIFEROL
     Route: 048
  6. SELEGILINE HYDROCHLORIDE [Concomitant]
     Active Substance: SELEGILINE HYDROCHLORIDE
     Route: 048
  7. ASPIRIN [Concomitant]
     Active Substance: ASPIRIN
     Route: 048
  8. RIVASTIGMINE [Concomitant]
     Active Substance: RIVASTIGMINE
  9. SIMVASTATIN [Concomitant]
     Active Substance: SIMVASTATIN
  10. METFORMIN [Concomitant]
     Active Substance: METFORMIN HYDROCHLORIDE
  11. RAMIPRIL [Concomitant]
     Active Substance: RAMIPRIL

REACTIONS (2)
  - Fear of injection [Unknown]
  - Eye discharge [Not Recovered/Not Resolved]

NARRATIVE: CASE EVENT DATE: 20250101
